FAERS Safety Report 9559652 (Version 2)
Quarter: 2014Q1

REPORT INFORMATION
  Report Type: Spontaneous
  Country: GB (occurrence: GB)
  Receive Date: 20130927
  Receipt Date: 20140124
  Transmission Date: 20141002
  Serious: Yes (Other)
  Sender: FDA-Public Use
  Company Number: PHHY2013GB105571

PATIENT
  Age: 27 Year
  Sex: Female
  Weight: 72.1 kg

DRUGS (10)
  1. ONDANSETRON [Suspect]
     Indication: PROPHYLAXIS OF NAUSEA AND VOMITING
     Dosage: 4 MG, WHEN REQUIRED ORALLY MAX. 3 TIMES A DAY
     Route: 048
     Dates: start: 20130907, end: 20130911
  2. TRAMADOL [Suspect]
     Indication: PAIN
     Dosage: 50 MG PRN (ON ADMISSION). INPATIENT: 100MG PRN. MAX 4 TIMES A DAY
     Route: 048
     Dates: start: 20130907
  3. CYCLIZINE [Suspect]
     Indication: PROPHYLAXIS OF NAUSEA AND VOMITING
     Dosage: 50 MG, WHEN REQUIRED. MAX THREE TIMES A DAY
     Route: 048
     Dates: start: 20130907, end: 20130911
  4. ENOXAPARIN [Concomitant]
     Dosage: 40 MG, AT NIGHT
     Route: 058
  5. PARACETAMOL [Concomitant]
     Dosage: 1 G, QID
  6. SALBUTAMOL [Concomitant]
     Indication: ASTHMA
     Dosage: 1-2 PUFFS WHEN REQUIRED
     Route: 055
  7. IBUPROFEN [Concomitant]
     Dosage: 400 MG, WHEN REQUIRED
  8. CO-CODAMOL [Concomitant]
     Dosage: 2 DF, WHEN REQUIRED
  9. ORAMORPH [Concomitant]
     Dosage: 2-10 MG WHEN REQUIRED
  10. METOCLOPRAMIDE [Concomitant]
     Dosage: 10 MG, WHEN REQUIRED.
     Dates: start: 20130911

REACTIONS (6)
  - Loss of consciousness [Recovered/Resolved]
  - Chest discomfort [Unknown]
  - Pallor [Unknown]
  - Feeling abnormal [Unknown]
  - Convulsion [Recovered/Resolved]
  - Tremor [Recovered/Resolved]
